FAERS Safety Report 22655683 (Version 2)
Quarter: 2023Q4

REPORT INFORMATION
  Report Type: Report from Study
  Country: US (occurrence: US)
  Receive Date: 20230629
  Receipt Date: 20231018
  Transmission Date: 20240109
  Serious: Yes (Hospitalization, Other)
  Sender: FDA-Public Use
  Company Number: US-ABBVIE-4342019

PATIENT
  Sex: Female

DRUGS (4)
  1. RINVOQ [Suspect]
     Active Substance: UPADACITINIB
     Indication: Rheumatoid arthritis
     Dosage: FORM STRENGTH:15 MILLIGRAM?LAST ADMIN DATE: 2023
     Route: 048
     Dates: start: 20220829
  2. RINVOQ [Suspect]
     Active Substance: UPADACITINIB
     Indication: Rheumatoid arthritis
     Dosage: EXTENDED RELEASE, FORM STRENGTH: 15 MILLIGRAM
     Route: 048
     Dates: start: 20230908
  3. RINVOQ [Suspect]
     Active Substance: UPADACITINIB
     Indication: Rheumatoid arthritis
     Dosage: FORM STRENGTH:15 MILLIGRAM, LAST ADMIN : 2023
     Route: 048
     Dates: start: 202303
  4. RINVOQ [Suspect]
     Active Substance: UPADACITINIB
     Indication: Rheumatoid arthritis
     Dosage: FIRST ADMIN AND LAST ADMIN : 2023, SEVEN TO TEN MISSED DOSES IN JUL 2023 OR EARLY AUG 2023
     Route: 048

REACTIONS (18)
  - Systemic lupus erythematosus [Not Recovered/Not Resolved]
  - Musculoskeletal stiffness [Not Recovered/Not Resolved]
  - Pharyngitis streptococcal [Unknown]
  - Sinusitis [Recovered/Resolved]
  - Retinal detachment [Unknown]
  - Labyrinthitis [Unknown]
  - Vertigo [Unknown]
  - Pain [Unknown]
  - Butterfly rash [Recovered/Resolved]
  - COVID-19 [Unknown]
  - Cerebrovascular accident [Unknown]
  - Influenza [Unknown]
  - Injury corneal [Unknown]
  - Eye haemorrhage [Unknown]
  - Ear infection [Unknown]
  - Illness [Unknown]
  - Sinusitis [Unknown]
  - Pneumonia [Unknown]

NARRATIVE: CASE EVENT DATE: 20230101
